FAERS Safety Report 9944535 (Version 1)
Quarter: 2014Q1

REPORT INFORMATION
  Report Type: Report from Study
  Country: US (occurrence: US)
  Receive Date: 20140303
  Receipt Date: 20140303
  Transmission Date: 20141002
  Serious: No
  Sender: FDA-Public Use
  Company Number: US-ABBVIE-13P-163-1053842-00

PATIENT
  Age: 64 Year
  Sex: Male
  Weight: 83.08 kg

DRUGS (2)
  1. HUMIRA [Suspect]
     Indication: CROHN^S DISEASE
     Dates: start: 201205, end: 201212
  2. HUMIRA [Suspect]
     Dates: start: 201212

REACTIONS (5)
  - Incorrect dose administered [Unknown]
  - Device malfunction [Unknown]
  - Injection site haemorrhage [Not Recovered/Not Resolved]
  - Injection site pain [Not Recovered/Not Resolved]
  - Crohn^s disease [Recovering/Resolving]
